FAERS Safety Report 18028457 (Version 1)
Quarter: 2020Q3

REPORT INFORMATION
  Report Type: Other
  Country: ES (occurrence: ES)
  Receive Date: 20200716
  Receipt Date: 20200716
  Transmission Date: 20201103
  Serious: Yes (Hospitalization)
  Sender: FDA-Public Use
  Company Number: ES-ROCHE-2641679

PATIENT
  Age: 25 Year
  Sex: Female

DRUGS (9)
  1. RITUXIMAB. [Suspect]
     Active Substance: RITUXIMAB
     Indication: MYASTHENIA GRAVIS
     Dosage: FOR 4 WEEKS AND THEN MONTHLY FOR 2 MONTHS.
     Route: 065
  2. RITUXIMAB. [Suspect]
     Active Substance: RITUXIMAB
     Indication: THYMOMA
  3. PYRIDOSTIGMINE [Concomitant]
     Active Substance: PYRIDOSTIGMINE
  4. ECULIZUMAB [Concomitant]
     Active Substance: ECULIZUMAB
     Dosage: INITIAL PHASE: 900 MG VIA INTRAVENOUS INFUSION EVERY WEEK FOR 4 WEEKS, AND THEN 1200 MG VIA INTRAVEN
     Route: 042
  5. CYCLOPHOSPHAMIDE. [Concomitant]
     Active Substance: CYCLOPHOSPHAMIDE
     Dosage: 1000 MG, AND CONTINUED AT 500 MG EVERY 4 WEEKS FOR 6 MONTHS
  6. PREDNISONE. [Concomitant]
     Active Substance: PREDNISONE
     Dosage: 50 MG/DAY WITH PROGRESSIVE DECREASE TO 10 MG/DAY
     Route: 048
  7. TACROLIMUS. [Concomitant]
     Active Substance: TACROLIMUS
  8. PREDNISONE. [Concomitant]
     Active Substance: PREDNISONE
  9. AZATHIOPRINE. [Concomitant]
     Active Substance: AZATHIOPRINE

REACTIONS (2)
  - Thrombosis [Unknown]
  - Sepsis [Unknown]
